FAERS Safety Report 5473928-1 (Version None)
Quarter: 2007Q3

REPORT INFORMATION
  Report Type: 
  Country: None (occurrence: None)
  Receive Date: 20070831
  Receipt Date: 20070625
  Transmission Date: 20080115
  Serious: No
  Sender: FDA-Public Use
  Company Number: 242253

PATIENT
  Age: 81 Year
  Sex: Female

DRUGS (7)
  1. LUCENTIS [Suspect]
     Indication: MACULAR DEGENERATION
     Dosage: INTRAVITREAL
     Dates: start: 20070531
  2. COUMADIN [Concomitant]
  3. LISINOPRIL [Concomitant]
  4. DIGOXIN [Concomitant]
  5. ATENOLOL [Concomitant]
  6. GLYBURIDE [Concomitant]
  7. AVANDIA [Concomitant]

REACTIONS (1)
  - EYE PAIN [None]
